FAERS Safety Report 17179733 (Version 1)
Quarter: 2019Q4

REPORT INFORMATION
  Report Type: Spontaneous
  Country: US (occurrence: US)
  Receive Date: 20191220
  Receipt Date: 20191220
  Transmission Date: 20200122
  Serious: No
  Sender: FDA-Public Use
  Company Number: US-ACCORD-155999

PATIENT
  Sex: Male
  Weight: 79.38 kg

DRUGS (2)
  1. FINASTERIDE ACCORD [Suspect]
     Active Substance: FINASTERIDE
     Indication: HAIR DISORDER
     Dates: start: 20190703, end: 201909
  2. MINOXIDIL. [Suspect]
     Active Substance: MINOXIDIL
     Indication: HAIR DISORDER
     Dosage: 5% TOPICAL SOLUTION
     Route: 061

REACTIONS (1)
  - Drug ineffective [Unknown]
